FAERS Safety Report 4436636-1 (Version None)
Quarter: 2004Q3

REPORT INFORMATION
  Report Type: 
  Country: None (occurrence: None)
  Receive Date: 20040830
  Receipt Date: 20040722
  Transmission Date: 20050211
  Serious: No
  Sender: FDA-Public Use
  Company Number: US-BRISTOL-MYERS SQUIBB COMPANY-12648796

PATIENT
  Age: 10 Year
  Sex: Male
  Weight: 57 kg

DRUGS (4)
  1. ABILIFY [Suspect]
     Indication: AUTISM
     Route: 048
  2. ADDERALL 10 [Concomitant]
  3. CELEXA [Concomitant]
  4. ZYRTEC [Concomitant]

REACTIONS (2)
  - AGGRESSION [None]
  - AGITATION [None]
